FAERS Safety Report 6369954-0 (Version None)
Quarter: 2009Q3

REPORT INFORMATION
  Report Type: 
  Country: None (occurrence: None)
  Receive Date: 20090923
  Receipt Date: 20071003
  Transmission Date: 20100115
  Serious: No
  Sender: FDA-Public Use
  Company Number: US-ASTRAZENECA-2006UW08244

PATIENT
  Age: 15471 Day
  Sex: Female
  Weight: 88 kg

DRUGS (20)
  1. SEROQUEL [Suspect]
     Indication: DEPRESSION
     Route: 048
  2. SEROQUEL [Suspect]
     Indication: BIPOLAR DISORDER
     Route: 048
  3. SEROQUEL [Suspect]
     Indication: ANXIETY
     Route: 048
  4. ADVAIR DISKUS 100/50 [Concomitant]
     Dosage: 2 TIMES
  5. ALBUTEROL [Concomitant]
     Dosage: 2 TIMES
     Dates: start: 19980406
  6. PERCOCET [Concomitant]
  7. PRILOSEC [Concomitant]
  8. TRAZODONE [Concomitant]
  9. LEXAPRO [Concomitant]
     Dosage: 10 MG- 20 MG
  10. ASPIRIN [Concomitant]
  11. FLEXERIL [Concomitant]
  12. PREMPRO [Concomitant]
  13. VISTARIL [Concomitant]
  14. SINGULAIR [Concomitant]
  15. ROBAXIN [Concomitant]
  16. VICODIN [Concomitant]
  17. RISPERDAL [Concomitant]
  18. ZYPREXA [Concomitant]
  19. GLYCET [Concomitant]
  20. GLUCOPHAGE [Concomitant]

REACTIONS (2)
  - DIABETES MELLITUS [None]
  - RETINOPATHY [None]
